FAERS Safety Report 6631391-9 (Version None)
Quarter: 2010Q1

REPORT INFORMATION
  Report Type: 
  Country: None (occurrence: None)
  Receive Date: 20100312
  Receipt Date: 20100303
  Transmission Date: 20100710
  Serious: Yes (Hospitalization)
  Sender: FDA-Public Use
  Company Number: FR-JNJFOC-20100300929

PATIENT
  Sex: Male

DRUGS (4)
  1. INTELENCE [Suspect]
     Route: 048
     Dates: start: 20100104
  2. INTELENCE [Suspect]
     Indication: HIV INFECTION
     Route: 048
     Dates: start: 20100104
  3. FOCETRIA [Suspect]
     Indication: INFLUENZA IMMUNISATION
     Route: 030
     Dates: start: 20091205, end: 20091205
  4. ISENTRESS [Suspect]
     Indication: HIV INFECTION
     Route: 048
     Dates: start: 20100104

REACTIONS (4)
  - MYELITIS [None]
  - NEUROPATHY PERIPHERAL [None]
  - PARAESTHESIA [None]
  - TREMOR [None]
